FAERS Safety Report 13665665 (Version 1)
Quarter: 2017Q2

REPORT INFORMATION
  Report Type: Spontaneous
  Country: US (occurrence: US)
  Receive Date: 20170619
  Receipt Date: 20170619
  Transmission Date: 20170830
  Serious: No
  Sender: FDA-Public Use
  Company Number: US-ASTRAZENECA-2017SE62228

PATIENT
  Sex: Female
  Weight: 95.7 kg

DRUGS (2)
  1. BYETTA [Suspect]
     Active Substance: EXENATIDE
     Indication: DIABETES MELLITUS
     Dosage: 5 MCG TWO TIMES A DAY
     Route: 058
  2. BYETTA [Suspect]
     Active Substance: EXENATIDE
     Indication: DIABETES MELLITUS
     Dosage: 10 MCG TWO TIMES A DAY
     Route: 058

REACTIONS (4)
  - Diabetes mellitus inadequate control [Unknown]
  - Circumstance or information capable of leading to medication error [Unknown]
  - Product quality issue [Unknown]
  - Needle issue [Unknown]
